FAERS Safety Report 21295106 (Version 1)
Quarter: 2022Q3

REPORT INFORMATION
  Report Type: Spontaneous
  Country: US (occurrence: US)
  Receive Date: 20220905
  Receipt Date: 20220905
  Transmission Date: 20221026
  Serious: No
  Sender: FDA-Public Use
  Company Number: US-ELI_LILLY_AND_COMPANY-US202208007777

PATIENT
  Sex: Female

DRUGS (1)
  1. BEBTELOVIMAB [Suspect]
     Active Substance: BEBTELOVIMAB
     Indication: COVID-19
     Dosage: UNK, UNKNOWN
     Route: 042
     Dates: start: 20220810, end: 20220810

REACTIONS (12)
  - Condition aggravated [Recovering/Resolving]
  - Paraesthesia [Unknown]
  - Head discomfort [Recovered/Resolved]
  - Erythema [Recovered/Resolved]
  - Gastric disorder [Not Recovered/Not Resolved]
  - Feeling abnormal [Unknown]
  - Diarrhoea [Not Recovered/Not Resolved]
  - Cough [Recovering/Resolving]
  - Hypertension [Recovered/Resolved]
  - Dizziness [Recovering/Resolving]
  - Infusion related reaction [Unknown]
  - Drug ineffective [Recovering/Resolving]
